FAERS Safety Report 20053836 (Version 1)
Quarter: 2021Q4

REPORT INFORMATION
  Report Type: Spontaneous
  Country: AE (occurrence: AE)
  Receive Date: 20211110
  Receipt Date: 20211110
  Transmission Date: 20220303
  Serious: Yes (Life-Threatening, Other)
  Sender: FDA-Public Use
  Company Number: AE-BoehringerIngelheim-2021-BI-134803

PATIENT
  Age: 47 Year
  Sex: Male
  Weight: 65 kg

DRUGS (1)
  1. JARDIANCE [Suspect]
     Active Substance: EMPAGLIFLOZIN
     Indication: Diabetes mellitus
     Dosage: JARDIANCE 25 MG ONCE A DAY
     Route: 065
     Dates: start: 20210304, end: 20210913

REACTIONS (4)
  - Fournier^s gangrene [Unknown]
  - Sepsis [Unknown]
  - Acute kidney injury [Recovered/Resolved with Sequelae]
  - Genital discolouration [Unknown]

NARRATIVE: CASE EVENT DATE: 20210910
